FAERS Safety Report 17445082 (Version 2)
Quarter: 2020Q3

REPORT INFORMATION
  Report Type: Report from Study
  Country: CA (occurrence: CA)
  Receive Date: 20200221
  Receipt Date: 20200916
  Transmission Date: 20201102
  Serious: Yes (Hospitalization, Other)
  Sender: FDA-Public Use
  Company Number: CA-GLAXOSMITHKLINE-CA2020AMR002220

PATIENT
  Sex: Female

DRUGS (2)
  1. SYMBICORT [Suspect]
     Active Substance: BUDESONIDE\FORMOTEROL FUMARATE DIHYDRATE
     Indication: PRODUCT USED FOR UNKNOWN INDICATION
     Dosage: 2 PUFF(S), BID
  2. MEPOLIZUMAB [Suspect]
     Active Substance: MEPOLIZUMAB
     Indication: ASTHMA
     Dosage: 100 MG, Z MONTHLY
     Route: 042
     Dates: start: 20170628

REACTIONS (7)
  - Influenza [Recovering/Resolving]
  - Lung infiltration [Unknown]
  - Hypoxia [Recovered/Resolved]
  - Obstructive airways disorder [Recovering/Resolving]
  - Chest X-ray abnormal [Recovered/Resolved]
  - Lower respiratory tract infection [Recovering/Resolving]
  - Patient isolation [Unknown]
